FAERS Safety Report 25797243 (Version 3)
Quarter: 2025Q4

REPORT INFORMATION
  Report Type: Spontaneous
  Country: US (occurrence: US)
  Receive Date: 20250912
  Receipt Date: 20251112
  Transmission Date: 20260118
  Serious: No
  Sender: VERTEX
  Company Number: US-VERTEX PHARMACEUTICALS-2025-014497

PATIENT
  Age: 67 Year
  Sex: Male

DRUGS (5)
  1. JOURNAVX [Suspect]
     Active Substance: SUZETRIGINE
     Indication: Pain
     Dosage: 50MG SUZETRIGINE
     Route: 048
     Dates: start: 20250514
  2. JOURNAVX [Suspect]
     Active Substance: SUZETRIGINE
     Indication: Spinal fracture
  3. JOURNAVX [Suspect]
     Active Substance: SUZETRIGINE
     Indication: Intervertebral disc protrusion
  4. JOURNAVX [Suspect]
     Active Substance: SUZETRIGINE
     Indication: Joint injury
  5. JOURNAVX [Suspect]
     Active Substance: SUZETRIGINE
     Indication: Neck injury

REACTIONS (2)
  - Pruritus [Unknown]
  - Off label use [Unknown]

NARRATIVE: CASE EVENT DATE: 20250101
